FAERS Safety Report 4534481-X (Version None)
Quarter: 2004Q4

REPORT INFORMATION
  Report Type: 
  Country: None (occurrence: None)
  Receive Date: 20041221
  Receipt Date: 20041221
  Transmission Date: 20050328
  Serious: Yes (Life-Threatening, Disabling)
  Sender: FDA-Public Use
  Company Number: None

PATIENT
  Age: 55 Year
  Sex: Female
  Weight: 52.1637 kg

DRUGS (1)
  1. METHYLPREDNISOLONE 4MG TAB [Suspect]
     Indication: URTICARIA
     Dosage: 21 PACK, DECREASING DOSAGE OVER A WEEK
     Dates: start: 20031106, end: 20031112

REACTIONS (15)
  - DEPRESSION [None]
  - DERMATITIS EXFOLIATIVE [None]
  - DYSPNOEA [None]
  - HALLUCINATION [None]
  - HEADACHE [None]
  - HYPERSENSITIVITY [None]
  - IMMUNE SYSTEM DISORDER [None]
  - LOCALISED OEDEMA [None]
  - LOSS OF CONSCIOUSNESS [None]
  - OEDEMA PERIPHERAL [None]
  - PAIN [None]
  - PSYCHOTIC DISORDER [None]
  - SKIN DISORDER [None]
  - SUICIDAL IDEATION [None]
  - SWELLING FACE [None]
